FAERS Safety Report 8988967 (Version 1)
Quarter: 2012Q4

REPORT INFORMATION
  Report Type: Report from Study
  Country: JP (occurrence: JP)
  Receive Date: 20121228
  Receipt Date: 20121228
  Transmission Date: 20130627
  Serious: Yes (Hospitalization)
  Sender: FDA-Public Use
  Company Number: JP-ACTELION-A-CH2012-66496

PATIENT
  Age: 75 Year
  Sex: Female
  Weight: 67.7 kg

DRUGS (6)
  1. TRACLEER [Suspect]
     Indication: PULMONARY HYPERTENSION
     Dosage: 125 mg, bid
     Route: 048
     Dates: start: 20100401
  2. TRACLEER [Suspect]
     Dosage: 62.5 mg, bid
     Route: 048
     Dates: start: 20100305, end: 20100331
  3. WARFARIN POTASSIUM [Concomitant]
  4. OMEPRAZOLE [Concomitant]
  5. TRIAZOLAM [Concomitant]
  6. OXYGEN [Concomitant]

REACTIONS (5)
  - Right ventricular failure [Recovering/Resolving]
  - Concomitant disease aggravated [Recovering/Resolving]
  - Liver function test abnormal [Recovered/Resolved]
  - Aspartate aminotransferase increased [Recovered/Resolved]
  - Alanine aminotransferase increased [Recovered/Resolved]
